FAERS Safety Report 12401212 (Version 1)
Quarter: 2016Q2

REPORT INFORMATION
  Report Type: Spontaneous
  Country: US (occurrence: None)
  Receive Date: 20160524
  Receipt Date: 20160524
  Transmission Date: 20160815
  Serious: Yes (Life-Threatening, Hospitalization, Other)
  Sender: FDA-Public Use
  Company Number: None

PATIENT
  Age: 74 Year
  Sex: Female
  Weight: 60.33 kg

DRUGS (1)
  1. CARFILZOMIB, 44MG [Suspect]
     Active Substance: CARFILZOMIB
     Indication: PLASMA CELL MYELOMA
     Dosage: 44 MG DAYS 1,2,8,9,15,16 INTRAVENOUS DRIP
     Route: 041
     Dates: start: 20160223, end: 20160309

REACTIONS (11)
  - Dyspnoea [None]
  - Swelling [None]
  - Chest pain [None]
  - Pyrexia [None]
  - Blood pressure diastolic increased [None]
  - Tachycardia [None]
  - Vomiting [None]
  - Diarrhoea [None]
  - Nausea [None]
  - Chills [None]
  - Flushing [None]

NARRATIVE: CASE EVENT DATE: 20160310
